FAERS Safety Report 13188584 (Version 1)
Quarter: 2017Q1

REPORT INFORMATION
  Report Type: Spontaneous
  Country: US (occurrence: US)
  Receive Date: 20170204
  Receipt Date: 20170204
  Transmission Date: 20170428
  Serious: Yes (Life-Threatening)
  Sender: FDA-Public Use
  Company Number: None

PATIENT
  Age: 70 Year
  Sex: Female
  Weight: 85.5 kg

DRUGS (4)
  1. HYZAAR [Concomitant]
     Active Substance: HYDROCHLOROTHIAZIDE\LOSARTAN POTASSIUM
  2. TYLENOL EXTRA STRENGTH [Concomitant]
     Active Substance: ACETAMINOPHEN
  3. DENTAL OFFICE CHLORHEXIDINE [Suspect]
     Active Substance: CHLORHEXIDINE
     Indication: TOOTH DISORDER
     Route: 048
     Dates: start: 20170202, end: 20170202
  4. ASA [Concomitant]
     Active Substance: ASPIRIN

REACTIONS (7)
  - Abdominal discomfort [None]
  - Presyncope [None]
  - Throat irritation [None]
  - Anxiety [None]
  - Dyspnoea [None]
  - Accidental exposure to product [None]
  - Palpitations [None]

NARRATIVE: CASE EVENT DATE: 20170202
